FAERS Safety Report 13670825 (Version 2)
Quarter: 2017Q3

REPORT INFORMATION
  Report Type: Spontaneous
  Country: IL (occurrence: IL)
  Receive Date: 20170620
  Receipt Date: 20170704
  Transmission Date: 20171127
  Serious: Yes (Other)
  Sender: FDA-Public Use
  Company Number: PHHY2017IL090661

PATIENT
  Age: 84 Year
  Sex: Female

DRUGS (2)
  1. ZOLEDRONATE [Suspect]
     Active Substance: ZOLEDRONIC ACID
     Indication: OSTEOPOROSIS
     Dosage: UNK
     Route: 042
  2. PREDNISONE. [Concomitant]
     Active Substance: PREDNISONE
     Indication: POLYMYALGIA RHEUMATICA
     Dosage: UNK
     Route: 065

REACTIONS (3)
  - Haemophilia [Unknown]
  - Myalgia [Recovered/Resolved]
  - Autoimmune disorder [Unknown]
